FAERS Safety Report 8949865 (Version 1)
Quarter: 2012Q4

REPORT INFORMATION
  Report Type: 
  Country: GB (occurrence: GB)
  Receive Date: 20121206
  Receipt Date: 20121206
  Transmission Date: 20130627
  Serious: Yes (Other)
  Sender: FDA-Public Use
  Company Number: GB-PFIZER INC-GB-WYE-G00409407

PATIENT
  Age: 59 Year
  Sex: Male

DRUGS (3)
  1. IBUPROFEN [Suspect]
     Indication: PAIN
     Dosage: 400.0 mg, 3x/day
     Route: 048
     Dates: start: 20070915, end: 20070918
  2. OLANZAPINE [Concomitant]
     Indication: PSYCHOSIS
     Dosage: 20 mg, 1x/day
     Route: 048
     Dates: start: 20070807
  3. PARACETAMOL [Concomitant]
     Indication: PAIN
     Dosage: 1 g, UNK
     Route: 048
     Dates: start: 20070915

REACTIONS (1)
  - Cardiac failure [Not Recovered/Not Resolved]
